FAERS Safety Report 25344398 (Version 3)
Quarter: 2025Q2

REPORT INFORMATION
  Report Type: Spontaneous
  Country: US (occurrence: US)
  Receive Date: 20250521
  Receipt Date: 20250624
  Transmission Date: 20250716
  Serious: No
  Sender: SANOFI AVENTIS
  Company Number: US-SA-2025SA146034

PATIENT
  Sex: Female
  Weight: 87.73 kg

DRUGS (17)
  1. DUPIXENT [Suspect]
     Active Substance: DUPILUMAB
     Indication: Dermatitis atopic
     Dosage: 300 MG, QOW
     Route: 058
     Dates: end: 202505
  2. STELARA [Suspect]
     Active Substance: USTEKINUMAB
  3. E [TOCOPHEROL] [Concomitant]
  4. ALLEGRA ALLERGY [Concomitant]
     Active Substance: FEXOFENADINE HYDROCHLORIDE
  5. DICLOFENAC SODIUM [Concomitant]
     Active Substance: DICLOFENAC SODIUM
  6. D1000 [Concomitant]
  7. MICARDIS [Concomitant]
     Active Substance: TELMISARTAN
  8. LANTUS [Concomitant]
     Active Substance: INSULIN GLARGINE
  9. HUMALOG [Concomitant]
     Active Substance: INSULIN LISPRO
  10. PRISTIQ EXTENDED-RELEASE [Concomitant]
     Active Substance: DESVENLAFAXINE SUCCINATE
  11. INSULIN LISPRO [Concomitant]
     Active Substance: INSULIN LISPRO
  12. TYLENOL [Concomitant]
     Active Substance: ACETAMINOPHEN
  13. DOXYCYCLINE [Concomitant]
     Active Substance: DOXYCYCLINE
  14. GLIPIZIDE [Concomitant]
     Active Substance: GLIPIZIDE
  15. TELMISARTAN [Concomitant]
     Active Substance: TELMISARTAN
  16. METHYLPREDNISOLONE [Concomitant]
     Active Substance: METHYLPREDNISOLONE
  17. FLUTICASONE PROPIONATE [Concomitant]
     Active Substance: FLUTICASONE PROPIONATE

REACTIONS (7)
  - Blood glucose abnormal [Unknown]
  - Myalgia [Recovering/Resolving]
  - Arthralgia [Unknown]
  - Drug ineffective [Unknown]
  - Blood pressure increased [Unknown]
  - Chest discomfort [Unknown]
  - Headache [Unknown]
